FAERS Safety Report 10899979 (Version 1)
Quarter: 2015Q1

REPORT INFORMATION
  Report Type: Spontaneous
  Country: GB (occurrence: GB)
  Receive Date: 20150310
  Receipt Date: 20150310
  Transmission Date: 20150721
  Serious: Yes (Death)
  Sender: FDA-Public Use
  Company Number: GB-ROCHE-1549463

PATIENT
  Age: 91 Year
  Sex: Male

DRUGS (4)
  1. OXYBUTYNIN [Concomitant]
     Active Substance: OXYBUTYNIN
  2. LUCENTIS [Suspect]
     Active Substance: RANIBIZUMAB
     Indication: PRODUCT USED FOR UNKNOWN INDICATION
     Route: 050
  3. PARACETAMOL [Concomitant]
     Active Substance: ACETAMINOPHEN
  4. FOLIC ACID. [Concomitant]
     Active Substance: FOLIC ACID

REACTIONS (4)
  - Coronary artery disease [Fatal]
  - Coronary artery stenosis [Fatal]
  - Arteriosclerosis coronary artery [Fatal]
  - Myocardial ischaemia [Fatal]
